FAERS Safety Report 8272057-1 (Version None)
Quarter: 2012Q2

REPORT INFORMATION
  Report Type: 
  Country: None (occurrence: None)
  Receive Date: 20120410
  Receipt Date: 20120406
  Transmission Date: 20120825
  Serious: Yes (Death)
  Sender: FDA-Public Use
  Company Number: HR-NAPPMUNDI-DEU-2012-0008812

PATIENT
  Age: 79 Year
  Sex: Female
  Weight: 68 kg

DRUGS (5)
  1. MORPHINE SULFATE [Suspect]
     Indication: CANCER PAIN
     Dosage: 10 MG, DAILY
     Route: 048
     Dates: start: 20111205, end: 20111207
  2. NOVOMIX [Concomitant]
     Dosage: 70 %, DAILY
     Route: 058
     Dates: start: 20060101
  3. LANITOP [Concomitant]
     Indication: CONGESTIVE CARDIOMYOPATHY
     Dosage: 0.1 MG, DAILY
     Route: 048
     Dates: start: 20040101
  4. FURSEMID                           /00032601/ [Concomitant]
     Indication: CONGESTIVE CARDIOMYOPATHY
     Dosage: 40 MG, Q48H
     Route: 048
     Dates: start: 20040101
  5. NOVOMIX [Concomitant]
     Indication: TYPE 1 DIABETES MELLITUS
     Dosage: 30 %, DAILY
     Route: 058
     Dates: start: 20060101

REACTIONS (1)
  - DEATH [None]
